FAERS Safety Report 5453881-7 (Version None)
Quarter: 2007Q3

REPORT INFORMATION
  Report Type: 
  Country: None (occurrence: None)
  Receive Date: 20070917
  Receipt Date: 20070913
  Transmission Date: 20080115
  Serious: Yes (Other)
  Sender: FDA-Public Use
  Company Number: B0486887A

PATIENT
  Sex: Male
  Weight: 108 kg

DRUGS (1)
  1. AVANDIA [Suspect]
     Route: 048
     Dates: start: 20060101, end: 20070502

REACTIONS (5)
  - CARDIAC FAILURE [None]
  - DYSPNOEA [None]
  - OEDEMA PERIPHERAL [None]
  - PHLEBITIS [None]
  - WEIGHT INCREASED [None]
